FAERS Safety Report 19471408 (Version 4)
Quarter: 2021Q3

REPORT INFORMATION
  Report Type: Other
  Country: US (occurrence: US)
  Receive Date: 20210629
  Receipt Date: 20210802
  Transmission Date: 20211014
  Serious: Yes (Other)
  Sender: FDA-Public Use
  Company Number: US-ROCHE-2810526

PATIENT
  Age: 39 Year
  Sex: Female
  Weight: 97.5 kg

DRUGS (6)
  1. OCREVUS [Suspect]
     Active Substance: OCRELIZUMAB
     Indication: MULTIPLE SCLEROSIS
     Dosage: 300 MG DAY 1 AND DAY 15 THEN 600 MG ONCE IN 6 MONTHS?MOST RECENT DOSE 12/JUL/2021
     Route: 042
     Dates: start: 201711
  2. TIZANIDINE. [Concomitant]
     Active Substance: TIZANIDINE
     Indication: MUSCLE SPASMS
     Dosage: EVERY 6 HOURS
     Route: 048
     Dates: start: 2017
  3. HYDROXYZINE [Concomitant]
     Active Substance: HYDROXYZINE HYDROCHLORIDE
     Route: 048
     Dates: start: 2017
  4. ALPRAZOLAM. [Concomitant]
     Active Substance: ALPRAZOLAM
     Indication: ANXIETY
     Route: 048
     Dates: start: 2017
  5. OMEPRAZOLE. [Concomitant]
     Active Substance: OMEPRAZOLE
     Indication: DYSPEPSIA
     Route: 048
     Dates: start: 2019
  6. OCREVUS [Suspect]
     Active Substance: OCRELIZUMAB
     Indication: RELAPSING MULTIPLE SCLEROSIS

REACTIONS (8)
  - Ataxia [Recovered/Resolved]
  - Sleep disorder [Unknown]
  - Optic neuritis [Not Recovered/Not Resolved]
  - Anxiety [Unknown]
  - Asthenia [Unknown]
  - Paraesthesia [Recovering/Resolving]
  - Pain [Unknown]
  - Fatigue [Recovering/Resolving]

NARRATIVE: CASE EVENT DATE: 202009
